FAERS Safety Report 7161597-4 (Version None)
Quarter: 2010Q4

REPORT INFORMATION
  Report Type: 
  Country: None (occurrence: None)
  Receive Date: 20101215
  Receipt Date: 20100503
  Transmission Date: 20110411
  Serious: No
  Sender: FDA-Public Use
  Company Number: US-MYLANLABS-2010S1007982

PATIENT
  Age: 76 Year
  Sex: Female

DRUGS (3)
  1. DIETHYLPROPION HYDROCHLORIDE TAB [Suspect]
     Indication: WEIGHT DECREASED
     Route: 048
     Dates: start: 20100406
  2. ACTOS [Suspect]
     Indication: DIABETES MELLITUS
     Route: 048
     Dates: start: 20100101
  3. GLIMEPIRIDE [Suspect]
     Indication: DIABETES MELLITUS
     Route: 048
     Dates: start: 20100101

REACTIONS (3)
  - BLOOD GLUCOSE DECREASED [None]
  - SLEEP DISORDER [None]
  - WEIGHT INCREASED [None]
